FAERS Safety Report 7464995-4 (Version None)
Quarter: 2011Q2

REPORT INFORMATION
  Report Type: 
  Country: None (occurrence: None)
  Receive Date: 20110509
  Receipt Date: 20110426
  Transmission Date: 20111010
  Serious: No
  Sender: FDA-Public Use
  Company Number: US-JNJFOC-20110500643

PATIENT
  Sex: Female
  Weight: 70.31 kg

DRUGS (4)
  1. FENTORA [Concomitant]
     Indication: PAIN
     Route: 048
  2. OXYCODONE [Concomitant]
     Indication: PAIN
     Route: 048
  3. DURAGESIC-100 [Suspect]
     Indication: MIGRAINE
     Route: 062
  4. KLONOPIN [Concomitant]
     Indication: ANXIETY
     Route: 048

REACTIONS (5)
  - HEADACHE [None]
  - WRONG TECHNIQUE IN DRUG USAGE PROCESS [None]
  - WITHDRAWAL SYNDROME [None]
  - INFLUENZA LIKE ILLNESS [None]
  - PAIN IN EXTREMITY [None]
